FAERS Safety Report 8447000-2 (Version None)
Quarter: 2012Q2

REPORT INFORMATION
  Report Type: 
  Country: None (occurrence: None)
  Receive Date: 20120612
  Receipt Date: 20120528
  Transmission Date: 20120825
  Serious: Yes (Death, Hospitalization)
  Sender: FDA-Public Use
  Company Number: GB-JNJFOC-20120413811

PATIENT
  Age: 65 Year
  Sex: Male
  Weight: 77.3 kg

DRUGS (7)
  1. ACYCLOVIR [Concomitant]
  2. ALLOPURINOL [Concomitant]
  3. NYSTATIN [Concomitant]
  4. PHENOXYMETHYLPENICILLIN [Concomitant]
  5. FILGRASTIM (FILGRASTIM) [Concomitant]
  6. DECITABINE [Suspect]
     Indication: MYELODYSPLASTIC SYNDROME
     Dosage: 38.4 MG, 1 IN 1 D, INTRAVENOUS
     Route: 042
     Dates: start: 20120319, end: 20120323
  7. ITRACONAZOLE [Concomitant]

REACTIONS (31)
  - PULMONARY OEDEMA [None]
  - RED BLOOD CELLS URINE POSITIVE [None]
  - RENAL INJURY [None]
  - RENAL FAILURE [None]
  - ATELECTASIS [None]
  - FUNGAL INFECTION [None]
  - PANCYTOPENIA [None]
  - IMMOBILE [None]
  - DECREASED APPETITE [None]
  - BONE MARROW FAILURE [None]
  - FLUID OVERLOAD [None]
  - DIARRHOEA [None]
  - DILATATION VENTRICULAR [None]
  - URINARY CASTS [None]
  - MYELODYSPLASTIC SYNDROME [None]
  - PANIC ATTACK [None]
  - CARDIOMEGALY [None]
  - DYSPNOEA [None]
  - OLIGURIA [None]
  - PYREXIA [None]
  - ASCITES [None]
  - CHILLS [None]
  - PLEURAL EFFUSION [None]
  - HAEMODIALYSIS [None]
  - PULMONARY HYPERTENSION [None]
  - LEFT VENTRICULAR DYSFUNCTION [None]
  - ABDOMINAL PAIN [None]
  - RIGHT VENTRICULAR FAILURE [None]
  - LUNG CONSOLIDATION [None]
  - HEPATOSPLENOMEGALY [None]
  - DISEASE PROGRESSION [None]
